FAERS Safety Report 25905325 (Version 1)
Quarter: 2025Q4

REPORT INFORMATION
  Report Type: Spontaneous
  Country: US (occurrence: US)
  Receive Date: 20251010
  Receipt Date: 20251010
  Transmission Date: 20260117
  Serious: No
  Sender: SANDOZ
  Company Number: US-SANDOZ-SDZ2025US073881

PATIENT
  Age: 81 Year
  Sex: Male
  Weight: 185 kg

DRUGS (1)
  1. RIVASTIGMINE [Suspect]
     Active Substance: RIVASTIGMINE
     Indication: Dementia Alzheimer^s type
     Dosage: 9.5 MG, QD
     Route: 062
     Dates: start: 20241014, end: 20251007

REACTIONS (2)
  - Application site erythema [Not Recovered/Not Resolved]
  - Product formulation issue [Unknown]

NARRATIVE: CASE EVENT DATE: 20250808
